FAERS Safety Report 8017280-6 (Version None)
Quarter: 2012Q1

REPORT INFORMATION
  Report Type: 
  Country: None (occurrence: None)
  Receive Date: 20120102
  Receipt Date: 20111229
  Transmission Date: 20120608
  Serious: Yes (Other)
  Sender: FDA-Public Use
  Company Number: PHEH2011US08381

PATIENT
  Sex: Female

DRUGS (6)
  1. TOPAMAX [Concomitant]
     Indication: MIGRAINE
     Dosage: 50 MG, QD
     Route: 048
  2. CELEBREX [Concomitant]
     Dosage: 200 MG, QD
     Route: 048
  3. LEXAPRO [Concomitant]
     Indication: DEPRESSION
     Dosage: 10 MG, QD
     Route: 048
  4. GILENYA [Suspect]
     Indication: MULTIPLE SCLEROSIS
     Dosage: 0.5 MG, DAILY
     Route: 048
     Dates: start: 20110902
  5. ADDERALL 5 [Concomitant]
     Indication: FATIGUE
     Dosage: 10 MG, QD
     Route: 048
  6. ZONEGRAN [Concomitant]
     Indication: MIGRAINE
     Dosage: UNK UKN, UNK
     Route: 048

REACTIONS (5)
  - DEHYDRATION [None]
  - NASOPHARYNGITIS [None]
  - VOMITING [None]
  - SINUSITIS [None]
  - BRONCHITIS [None]
